FAERS Safety Report 5520010-0 (Version None)
Quarter: 2007Q4

REPORT INFORMATION
  Report Type: 
  Country: None (occurrence: None)
  Receive Date: 20071116
  Receipt Date: 20071113
  Transmission Date: 20080405
  Serious: Yes (Hospitalization)
  Sender: FDA-Public Use
  Company Number: US-ASTRAZENECA-2007UW26223

PATIENT
  Age: 25359 Day
  Sex: Female
  Weight: 67.3 kg

DRUGS (21)
  1. ATACAND [Suspect]
     Indication: HYPERTENSION
     Route: 048
     Dates: start: 20070927
  2. TEKTURNA [Concomitant]
  3. MINOXIDIL [Concomitant]
  4. CARTIA XT [Concomitant]
  5. OS-CAL [Concomitant]
  6. SIMPLY SLEEP [Concomitant]
  7. PRILOSEC [Concomitant]
  8. LASIX [Concomitant]
  9. ZOCOR [Concomitant]
  10. GLIPIZIDE [Concomitant]
  11. DETROL LA [Concomitant]
  12. POTASSIUM CHLORIDE [Concomitant]
  13. CENTRUM SILVER [Concomitant]
  14. FOLIC ACID [Concomitant]
  15. ECOTRIN [Concomitant]
  16. ATENOLOL [Concomitant]
  17. NOVULIN INSULIN 70/30 [Concomitant]
  18. ENALAPRIL MALEATE [Concomitant]
  19. AMITRIPTYLINE HCL [Concomitant]
  20. FERROUS SULFATE TAB [Concomitant]
  21. OXYCODONE AND ACETAMINOPHEN [Concomitant]

REACTIONS (1)
  - HUMERUS FRACTURE [None]
